FAERS Safety Report 6919867-8 (Version None)
Quarter: 2010Q3

REPORT INFORMATION
  Report Type: 
  Country: None (occurrence: None)
  Receive Date: 20100811
  Receipt Date: 20100803
  Transmission Date: 20110219
  Serious: Yes (Hospitalization)
  Sender: FDA-Public Use
  Company Number: DE-ABBOTT-09P-062-0566630-00

PATIENT
  Sex: Female
  Weight: 57 kg

DRUGS (2)
  1. HUMIRA [Suspect]
     Indication: CROHN'S DISEASE
     Route: 058
     Dates: start: 20080701, end: 20090301
  2. HUMIRA [Suspect]
     Dates: start: 20090329

REACTIONS (5)
  - DEPRESSED MOOD [None]
  - FUNGAL SKIN INFECTION [None]
  - GENITAL INFECTION [None]
  - PARAESTHESIA [None]
  - TONSILLAR INFLAMMATION [None]
